FAERS Safety Report 8375524-5 (Version None)
Quarter: 2012Q1

REPORT INFORMATION
  Report Type: 
  Country: None (occurrence: None)
  Receive Date: 20120323
  Receipt Date: 20111123
  Transmission Date: 20120608
  Serious: Yes (Hospitalization)
  Sender: FDA-Public Use
  Company Number: 163-21880-11113609

PATIENT
  Age: 73 Year
  Sex: Female
  Weight: 59.4212 kg

DRUGS (3)
  1. REVLIMID [Suspect]
     Indication: MULTIPLE MYELOMA
     Dosage: 10 MG, 1 IN 1 D, PO 10 MG, QD FOR 21 DAYS, PO
     Route: 048
     Dates: start: 20110301
  2. REVLIMID [Suspect]
     Indication: MULTIPLE MYELOMA
     Dosage: 10 MG, 1 IN 1 D, PO 10 MG, QD FOR 21 DAYS, PO
     Route: 048
     Dates: start: 20091201
  3. REVLIMID [Suspect]
     Indication: MULTIPLE MYELOMA
     Dosage: 10 MG, 1 IN 1 D, PO 10 MG, QD FOR 21 DAYS, PO
     Route: 048
     Dates: start: 20111001

REACTIONS (2)
  - FULL BLOOD COUNT DECREASED [None]
  - DEPRESSED LEVEL OF CONSCIOUSNESS [None]
